FAERS Safety Report 5636688-7 (Version None)
Quarter: 2008Q1

REPORT INFORMATION
  Report Type: 
  Country: None (occurrence: None)
  Receive Date: 20080219
  Receipt Date: 20080219
  Transmission Date: 20080703
  Serious: No
  Sender: FDA-Public Use
  Company Number: None

PATIENT
  Age: 59 Year
  Sex: Female
  Weight: 56.6996 kg

DRUGS (1)
  1. LEVAQUIN [Suspect]
     Indication: BLOOD URINE PRESENT
     Dosage: ONE   ONCE DAILY PO
     Route: 048
     Dates: start: 20080114, end: 20080121

REACTIONS (9)
  - ARTHRALGIA [None]
  - BEDRIDDEN [None]
  - GAIT DISTURBANCE [None]
  - INSOMNIA [None]
  - MUSCLE TWITCHING [None]
  - MUSCULOSKELETAL STIFFNESS [None]
  - MYALGIA [None]
  - PAIN [None]
  - TENDON PAIN [None]
